FAERS Safety Report 7483268-7 (Version None)
Quarter: 2011Q2

REPORT INFORMATION
  Report Type: 
  Country: None (occurrence: None)
  Receive Date: 20110517
  Receipt Date: 20110507
  Transmission Date: 20111010
  Serious: Yes (Hospitalization, Other)
  Sender: FDA-Public Use
  Company Number: US-PAR PHARMACEUTICAL, INC-2011SCPR002968

PATIENT

DRUGS (2)
  1. DEXAMETHASONE [Suspect]
     Indication: STEROID THERAPY
     Dosage: SLOW TAPER FOR 5 MONTHS
     Route: 065
  2. HYDROCORTISONE [Concomitant]
     Indication: STEROID THERAPY
     Dosage: 0.5 MG, BID FOR 9 MONTHS
     Route: 065

REACTIONS (2)
  - POSTERIOR REVERSIBLE ENCEPHALOPATHY SYNDROME [None]
  - HYDROCEPHALUS [None]
